FAERS Safety Report 16392920 (Version 3)
Quarter: 2019Q3

REPORT INFORMATION
  Report Type: Spontaneous
  Country: CN (occurrence: CN)
  Receive Date: 20190605
  Receipt Date: 20190702
  Transmission Date: 20191004
  Serious: Yes (Death, Life-Threatening, Hospitalization, Disabling)
  Sender: FDA-Public Use
  Company Number: CN-BRISTOL-MYERS SQUIBB COMPANY-BMS-2019-054354

PATIENT
  Age: 51 Year
  Sex: Male

DRUGS (1)
  1. OPDIVO [Suspect]
     Active Substance: NIVOLUMAB
     Indication: NON-SMALL CELL LUNG CANCER
     Dosage: 140 MILLIGRAM, ONCE IN TOTAL
     Route: 042
     Dates: start: 20190530, end: 20190530

REACTIONS (8)
  - Chest discomfort [Unknown]
  - Peripheral coldness [Unknown]
  - Palpitations [Unknown]
  - Asthma [Unknown]
  - Pulse abnormal [Unknown]
  - Dyspnoea [Fatal]
  - Cyanosis [Unknown]
  - Dysphoria [Unknown]

NARRATIVE: CASE EVENT DATE: 20190530
